FAERS Safety Report 20406402 (Version 2)
Quarter: 2022Q1

REPORT INFORMATION
  Report Type: Report from Study
  Country: IT (occurrence: IT)
  Receive Date: 20220131
  Receipt Date: 20220316
  Transmission Date: 20220423
  Serious: Yes (Hospitalization, Other)
  Sender: FDA-Public Use
  Company Number: IT-AMGEN-ITANI2021130922

PATIENT
  Age: 60 Year
  Sex: Male

DRUGS (4)
  1. AMG-510 [Suspect]
     Active Substance: AMG-510
     Indication: Non-small cell lung cancer
     Dosage: 960 MILLIGRAM, QD
     Route: 048
     Dates: start: 20210525
  2. AMG-510 [Suspect]
     Active Substance: AMG-510
     Dosage: 720 MILLIGRAM, QD
     Route: 048
     Dates: start: 20210713
  3. AMG-510 [Suspect]
     Active Substance: AMG-510
     Dosage: 480 MILLIGRAM, QD
     Route: 048
     Dates: start: 20210803, end: 20211102
  4. AMG-510 [Suspect]
     Active Substance: AMG-510
     Dosage: 240 MILLIGRAM, QD
     Route: 048
     Dates: start: 20211123

REACTIONS (6)
  - Pulmonary embolism [Recovered/Resolved]
  - Hyperbilirubinaemia [Recovered/Resolved]
  - Pulmonary alveolar haemorrhage [Recovered/Resolved]
  - Pericardial effusion [Recovered/Resolved]
  - Emphysema [Recovered/Resolved]
  - Diarrhoea [Recovered/Resolved]

NARRATIVE: CASE EVENT DATE: 20210705
